FAERS Safety Report 23701578 (Version 1)
Quarter: 2024Q2

REPORT INFORMATION
  Report Type: Spontaneous
  Country: IT (occurrence: IT)
  Receive Date: 20240403
  Receipt Date: 20240403
  Transmission Date: 20240716
  Serious: Yes (Hospitalization)
  Sender: FDA-Public Use
  Company Number: None

PATIENT
  Age: 39 Year
  Sex: Female

DRUGS (7)
  1. PACLITAXEL [Suspect]
     Active Substance: PACLITAXEL
     Indication: Breast cancer stage IV
  2. PREGABALIN [Concomitant]
     Active Substance: PREGABALIN
  3. RABEPRAZOLE SODIUM [Concomitant]
     Active Substance: RABEPRAZOLE SODIUM
  4. MS CONTIN [Concomitant]
     Active Substance: MORPHINE SULFATE
  5. ACETAMINOPHEN [Concomitant]
     Active Substance: ACETAMINOPHEN
  6. DECAPEPTYL [Concomitant]
     Dosage: POWDER AND SOLVENT FOR PROLONGED-RELEASE SUSPENSION FOR INJE
  7. MAGALDRATE [Concomitant]
     Active Substance: MAGALDRATE
     Dosage: 80, GEL IN SACHET

REACTIONS (6)
  - Flushing [Recovered/Resolved]
  - Dyspnoea [Recovered/Resolved]
  - Hypoxia [Recovered/Resolved]
  - Face oedema [Recovered/Resolved]
  - Wheezing [Recovered/Resolved]
  - Throat tightness [Recovered/Resolved]

NARRATIVE: CASE EVENT DATE: 20240228
